FAERS Safety Report 20236255 (Version 2)
Quarter: 2021Q4

REPORT INFORMATION
  Report Type: Spontaneous
  Country: FR (occurrence: FR)
  Receive Date: 20211228
  Receipt Date: 20211229
  Transmission Date: 20220303
  Serious: No
  Sender: FDA-Public Use
  Company Number: FR-002147023-NVSC2021FR286975

PATIENT
  Age: 70 Year
  Sex: Male

DRUGS (1)
  1. XOLAIR [Suspect]
     Active Substance: OMALIZUMAB
     Indication: Asthma
     Route: 058
     Dates: start: 201112

REACTIONS (3)
  - Aspergillus test positive [Recovering/Resolving]
  - Blood immunoglobulin E increased [Unknown]
  - Inappropriate schedule of product administration [Unknown]
